FAERS Safety Report 8308709-4 (Version None)
Quarter: 2012Q2

REPORT INFORMATION
  Report Type: 
  Country: None (occurrence: None)
  Receive Date: 20120424
  Receipt Date: 20120417
  Transmission Date: 20120825
  Serious: Yes (Hospitalization, Other)
  Sender: FDA-Public Use
  Company Number: ES-B.I. PHARMACEUTICALS,INC./RIDGEFIELD-2012-ES-00162ES

PATIENT
  Age: 83 Year
  Sex: Female

DRUGS (5)
  1. PRADAXA [Suspect]
     Indication: ATRIAL FIBRILLATION
     Route: 048
     Dates: start: 20100301, end: 20110301
  2. OMEPRAZOLE [Concomitant]
  3. ENCOMCOR [Concomitant]
  4. AMILORIDE HCL AND HYDROCHLOROTHIAZIDE [Concomitant]
  5. SPIRIVA [Concomitant]

REACTIONS (4)
  - HEPATIC FAILURE [None]
  - ASTHENIA [None]
  - WEIGHT DECREASED [None]
  - JAUNDICE [None]
